FAERS Safety Report 4955655-X (Version None)
Quarter: 2006Q1

REPORT INFORMATION
  Report Type: 
  Country: None (occurrence: None)
  Receive Date: 20060328
  Receipt Date: 20060314
  Transmission Date: 20060701
  Serious: Yes (Other)
  Sender: FDA-Public Use
  Company Number: GB-MERCK-0603USA02475

PATIENT
  Age: 50 Year
  Sex: Male
  Weight: 76 kg

DRUGS (5)
  1. PROPRANOLOL HYDROCHLORIDE [Concomitant]
     Indication: BASEDOW'S DISEASE
     Route: 048
     Dates: start: 20040401
  2. BENDROFLUMETHIAZIDE [Concomitant]
     Indication: HYPERTENSION
     Route: 048
  3. PRINIVIL [Suspect]
     Indication: HYPERTENSION
     Route: 048
     Dates: start: 20050401, end: 20060214
  4. CARBIMAZOLE [Concomitant]
     Indication: BASEDOW'S DISEASE
     Route: 048
  5. LEVOTHYROXINE SODIUM [Concomitant]
     Indication: BASEDOW'S DISEASE
     Route: 048
     Dates: start: 20040401

REACTIONS (3)
  - MOBILITY DECREASED [None]
  - MUSCULOSKELETAL CHEST PAIN [None]
  - MUSCULOSKELETAL STIFFNESS [None]
